FAERS Safety Report 4745563-1 (Version None)
Quarter: 2005Q3

REPORT INFORMATION
  Report Type: 
  Country: None (occurrence: None)
  Receive Date: 20050812
  Receipt Date: 20050801
  Transmission Date: 20060218
  Serious: Yes (Hospitalization)
  Sender: FDA-Public Use
  Company Number: 2005064956

PATIENT
  Age: 60 Year
  Sex: Male

DRUGS (7)
  1. DIFLUCAN [Suspect]
     Indication: ILL-DEFINED DISORDER
     Dosage: 100 MG (1 IN 1 D), ORAL
     Route: 048
  2. LAMIVUDINE [Suspect]
     Indication: ILL-DEFINED DISORDER
     Dosage: 300 MG (150 MG, 2 IN 1 D),
  3. ACYCLOVIR [Suspect]
     Indication: ILL-DEFINED DISORDER
     Dosage: 800 MG, (400 MG, 2 IN 1 D),
  4. VIREAD [Suspect]
     Indication: ILL-DEFINED DISORDER
     Dosage: (300 MG),
  5. SEPTRA DS [Suspect]
     Indication: ILL-DEFINED DISORDER
     Dosage: (FREQUENCY:  EVERY OTHER
  6. IBUPROFEN [Suspect]
     Indication: ILL-DEFINED DISORDER
     Dosage: 1800 MG (600 MG, 3 IN 1 D),
  7. ASPIRIN [Concomitant]

REACTIONS (8)
  - ATRIAL FIBRILLATION [None]
  - BLOOD PRESSURE DIASTOLIC DECREASED [None]
  - DIFFICULTY IN WALKING [None]
  - DYSPNOEA EXERTIONAL [None]
  - QRS AXIS ABNORMAL [None]
  - RESPIRATORY RATE INCREASED [None]
  - VENTRICULAR EXTRASYSTOLES [None]
  - VENTRICULAR TACHYCARDIA [None]
